FAERS Safety Report 17903597 (Version 1)
Quarter: 2020Q2

REPORT INFORMATION
  Report Type: Spontaneous
  Country: US (occurrence: US)
  Receive Date: 20200616
  Receipt Date: 20200616
  Transmission Date: 20200714
  Serious: Yes (Other)
  Sender: FDA-Public Use
  Company Number: US-SUNOVION-2020SUN001763

PATIENT
  Age: 54 Year
  Sex: Female

DRUGS (2)
  1. APTIOM [Suspect]
     Active Substance: ESLICARBAZEPINE ACETATE
     Dosage: UNK
     Route: 048
  2. APTIOM [Suspect]
     Active Substance: ESLICARBAZEPINE ACETATE
     Dosage: 1200 MG (2 600MG TABLETS), QD
     Route: 048

REACTIONS (4)
  - Seizure [Unknown]
  - Visual impairment [Unknown]
  - Dry eye [Unknown]
  - Therapy interrupted [Unknown]
